FAERS Safety Report 4948599-0 (Version None)
Quarter: 2006Q1

REPORT INFORMATION
  Report Type: 
  Country: None (occurrence: None)
  Receive Date: 20060320
  Receipt Date: 20060208
  Transmission Date: 20060701
  Serious: Yes (Other)
  Sender: FDA-Public Use
  Company Number: US-MERCK-0602USA02284

PATIENT
  Age: 75 Year
  Sex: Female
  Weight: 73 kg

DRUGS (13)
  1. VIOXX [Suspect]
     Indication: PAIN
     Route: 048
     Dates: start: 20030101, end: 20041001
  2. TYLENOL (CAPLET) [Concomitant]
     Route: 065
  3. TOPROL-XL [Concomitant]
     Route: 065
  4. LIPITOR [Concomitant]
     Route: 065
  5. ZANTAC [Concomitant]
     Route: 065
  6. ISOSORBIDE DINITRATE [Concomitant]
     Route: 065
  7. FLONASE [Concomitant]
     Route: 065
  8. LASIX [Concomitant]
     Route: 065
  9. ATROVENT [Concomitant]
     Route: 065
  10. NITROGLYCERIN [Concomitant]
     Route: 065
  11. PLAVIX [Concomitant]
     Route: 065
  12. COLACE [Concomitant]
     Route: 065
  13. DIFLUCAN [Concomitant]
     Route: 065

REACTIONS (1)
  - CEREBROVASCULAR ACCIDENT [None]
